FAERS Safety Report 12175856 (Version 1)
Quarter: 2016Q1

REPORT INFORMATION
  Report Type: Spontaneous
  Country: US (occurrence: US)
  Receive Date: 20160314
  Receipt Date: 20160314
  Transmission Date: 20160526
  Serious: No
  Sender: FDA-Public Use
  Company Number: US-PFIZER INC-2016116442

PATIENT
  Age: 85 Year
  Sex: Female

DRUGS (5)
  1. LIPITOR [Suspect]
     Active Substance: ATORVASTATIN CALCIUM
     Dosage: UNK
  2. TETANUS TOXOID [Suspect]
     Active Substance: CLOSTRIDIUM TETANI TOXOID ANTIGEN (FORMALDEHYDE INACTIVATED)
     Dosage: UNK
  3. CRESTOR [Suspect]
     Active Substance: ROSUVASTATIN CALCIUM
     Dosage: UNK
  4. TDAP IPV [Suspect]
     Active Substance: DIPHTHERIA AND TETANUS TOXOIDS AND ACELLULAR PERTUSSIS ADSORBED AND INACTIVATED POLIOVIRUS VACCINE
     Dosage: UNK
  5. ROSUVASTATIN [Suspect]
     Active Substance: ROSUVASTATIN
     Dosage: UNK

REACTIONS (1)
  - Drug hypersensitivity [Unknown]
